FAERS Safety Report 24377846 (Version 1)
Quarter: 2024Q3

REPORT INFORMATION
  Report Type: Spontaneous
  Country: FI (occurrence: FI)
  Receive Date: 20240930
  Receipt Date: 20240930
  Transmission Date: 20241016
  Serious: Yes (Death)
  Sender: CHEPLAPHARM
  Company Number: None

PATIENT
  Age: 34 Year
  Sex: Female

DRUGS (1)
  1. CAPECITABINE [Suspect]
     Active Substance: CAPECITABINE
     Indication: Breast cancer
     Dosage: 1500MG+1500MG
     Route: 048
     Dates: start: 20201109

REACTIONS (4)
  - Ventricular fibrillation [Fatal]
  - Arteriospasm coronary [Fatal]
  - Pain in jaw [Fatal]
  - Drug resistance [Fatal]

NARRATIVE: CASE EVENT DATE: 20201113
